FAERS Safety Report 21225752 (Version 1)
Quarter: 2022Q3

REPORT INFORMATION
  Report Type: Spontaneous
  Country: US (occurrence: US)
  Receive Date: 20220818
  Receipt Date: 20220818
  Transmission Date: 20221027
  Serious: Yes (Other)
  Sender: FDA-Public Use
  Company Number: US-UNITED THERAPEUTICS-UNT-2022-015458

PATIENT
  Sex: Female

DRUGS (17)
  1. ORENITRAM [Suspect]
     Active Substance: TREPROSTINIL
     Indication: Pulmonary arterial hypertension
     Dosage: UNK
     Route: 048
     Dates: start: 20220701
  2. ORENITRAM [Suspect]
     Active Substance: TREPROSTINIL
     Dosage: 12.5 MG, TID
     Route: 048
     Dates: end: 20220712
  3. ORENITRAM [Suspect]
     Active Substance: TREPROSTINIL
     Dosage: 11.5 MG, TID
     Route: 048
     Dates: start: 20220712, end: 202207
  4. ORENITRAM [Suspect]
     Active Substance: TREPROSTINIL
     Dosage: 10 MG, TID
     Route: 048
     Dates: start: 202207, end: 202207
  5. ORENITRAM [Suspect]
     Active Substance: TREPROSTINIL
     Dosage: 9 MG, TID
     Route: 048
     Dates: start: 202207
  6. ORENITRAM [Suspect]
     Active Substance: TREPROSTINIL
     Dosage: 8.5 MG, TID
     Route: 048
  7. ORENITRAM [Suspect]
     Active Substance: TREPROSTINIL
     Indication: Pulmonary arterial hypertension
     Dosage: UNK
     Route: 048
  8. ORENITRAM [Suspect]
     Active Substance: TREPROSTINIL
     Indication: Pulmonary arterial hypertension
     Dosage: UNK
     Route: 048
  9. ORENITRAM [Suspect]
     Active Substance: TREPROSTINIL
     Indication: Pulmonary arterial hypertension
     Dosage: UNK
     Route: 048
  10. ORENITRAM [Suspect]
     Active Substance: TREPROSTINIL
     Indication: Pulmonary arterial hypertension
     Dosage: UNK
     Route: 048
  11. REMODULIN [Suspect]
     Active Substance: TREPROSTINIL
     Indication: Pulmonary arterial hypertension
     Dosage: UNK UNK, CONTINUING
     Route: 058
     Dates: start: 20180321
  12. REMODULIN [Suspect]
     Active Substance: TREPROSTINIL
     Dosage: UNK UNK, CONTINUING
     Route: 058
     Dates: start: 20180329
  13. REMODULIN [Suspect]
     Active Substance: TREPROSTINIL
     Dosage: UNK UNK, CONTINUING
     Route: 058
     Dates: start: 201804
  14. REMODULIN [Suspect]
     Active Substance: TREPROSTINIL
     Dosage: UNK, CONTINUING
     Route: 058
     Dates: start: 20200722
  15. REMODULIN [Suspect]
     Active Substance: TREPROSTINIL
     Dosage: 0.044 ?G/KG, CONTINUING
     Route: 058
  16. REMODULIN [Suspect]
     Active Substance: TREPROSTINIL
     Dosage: 0.032 ?G/KG, CONTINUING
     Route: 058
     Dates: end: 20220701
  17. POTASSIUM [Suspect]
     Active Substance: POTASSIUM
     Indication: Product used for unknown indication
     Dosage: UNK
     Route: 065
     Dates: end: 202207

REACTIONS (24)
  - Pulmonary oedema [Recovering/Resolving]
  - Renal impairment [Unknown]
  - Headache [Recovering/Resolving]
  - Muscle spasms [Unknown]
  - Nausea [Unknown]
  - Chest pain [Recovering/Resolving]
  - Oxygen saturation decreased [Not Recovered/Not Resolved]
  - Vomiting [Not Recovered/Not Resolved]
  - Diarrhoea [Unknown]
  - Pain in extremity [Unknown]
  - Fibromyalgia [Not Recovered/Not Resolved]
  - Fatigue [Unknown]
  - Pain in jaw [Unknown]
  - Malaise [Recovering/Resolving]
  - Pyrexia [Recovering/Resolving]
  - Blood potassium increased [Recovered/Resolved]
  - Flushing [Unknown]
  - Palpitations [Unknown]
  - Dyspnoea [Unknown]
  - Pain [Unknown]
  - Arthralgia [Unknown]
  - Abdominal pain [Unknown]
  - Flatulence [Unknown]
  - Oedema [Unknown]

NARRATIVE: CASE EVENT DATE: 20220101
